FAERS Safety Report 10214690 (Version 1)
Quarter: 2014Q2

REPORT INFORMATION
  Report Type: Spontaneous
  Country: US (occurrence: US)
  Receive Date: 20140603
  Receipt Date: 20140603
  Transmission Date: 20141212
  Serious: No
  Sender: FDA-Public Use
  Company Number: US-009507513-1405USA014891

PATIENT
  Age: 19 Year
  Sex: Female
  Weight: 58.96 kg

DRUGS (1)
  1. NEXPLANON [Suspect]
     Indication: MENSTRUATION IRREGULAR
     Dosage: UNK, LEFT ARM
     Route: 059
     Dates: start: 20131122

REACTIONS (4)
  - Haemorrhage [Unknown]
  - Feeling abnormal [Unknown]
  - Blood iron decreased [Unknown]
  - Asthenia [Unknown]
